FAERS Safety Report 9926354 (Version 2)
Quarter: 2015Q4

REPORT INFORMATION
  Report Type: Report from Study
  Country: US (occurrence: US)
  Receive Date: 20140226
  Receipt Date: 20151216
  Transmission Date: 20160305
  Serious: Yes (Other)
  Sender: FDA-Public Use
  Company Number: US-AMGEN-USASP2013085552

PATIENT
  Age: 57 Year
  Sex: Female

DRUGS (5)
  1. MORPHINE [Concomitant]
     Active Substance: MORPHINE
     Dosage: UNK
  2. ENBREL [Suspect]
     Active Substance: ETANERCEPT
     Indication: RHEUMATOID ARTHRITIS
     Dosage: 50 MG, QWK
     Route: 065
     Dates: start: 2002, end: 201508
  3. METHOTREXATE (METHOTREXATE SODIUM) [Concomitant]
     Active Substance: METHOTREXATE SODIUM
     Dosage: UNK
  4. OXYCODONE [Concomitant]
     Active Substance: OXYCODONE
     Dosage: UNK
  5. AMOXCLAV                           /00852501/ [Concomitant]

REACTIONS (15)
  - Neuropathic arthropathy [Unknown]
  - Foot fracture [Unknown]
  - Malaise [Not Recovered/Not Resolved]
  - Synovial cyst [Unknown]
  - Lung infection [Recovered/Resolved]
  - Systemic lupus erythematosus [Unknown]
  - Pyrexia [Not Recovered/Not Resolved]
  - Neuralgia [Recovered/Resolved]
  - Cough [Not Recovered/Not Resolved]
  - Oedema [Recovered/Resolved]
  - Endodontic procedure [Unknown]
  - Haemorrhage [Unknown]
  - Toothache [Recovered/Resolved]
  - Intervertebral disc degeneration [Unknown]
  - Productive cough [Not Recovered/Not Resolved]

NARRATIVE: CASE EVENT DATE: 2003
